FAERS Safety Report 4884614-0 (Version None)
Quarter: 2006Q1

REPORT INFORMATION
  Report Type: 
  Country: None (occurrence: None)
  Receive Date: 20060117
  Receipt Date: 20060105
  Transmission Date: 20060701
  Serious: Yes (Other)
  Sender: FDA-Public Use
  Company Number: 163-20785-06010140

PATIENT
  Sex: Female

DRUGS (3)
  1. THALOMID [Suspect]
     Indication: MULTIPLE MYELOMA
     Dosage: ORAL
     Route: 048
     Dates: start: 20000101
  2. BIPHOSPHONATE (BISPHOSPHONATES) [Suspect]
     Indication: DRUG USE FOR UNKNOWN INDICATION
     Dates: start: 20000101
  3. PULSE THERAPY (CORTICOSTEROIDS) [Concomitant]

REACTIONS (6)
  - CONSTIPATION [None]
  - DISEASE PROGRESSION [None]
  - INFECTION [None]
  - NEUROPATHY PERIPHERAL [None]
  - OSTEONECROSIS [None]
  - PAIN IN JAW [None]
